FAERS Safety Report 24742885 (Version 2)
Quarter: 2024Q4

REPORT INFORMATION
  Report Type: Spontaneous
  Country: US (occurrence: US)
  Receive Date: 20241217
  Receipt Date: 20241227
  Transmission Date: 20250115
  Serious: Yes (Hospitalization)
  Sender: TEVA
  Company Number: US-TEVA-VS-3275956

PATIENT
  Age: 79 Year
  Sex: Male

DRUGS (3)
  1. NITROFURANTOIN [Suspect]
     Active Substance: NITROFURANTOIN
     Indication: Urinary tract infection
     Route: 065
  2. ACIDOPHILUS [Suspect]
     Active Substance: LACTOBACILLUS ACIDOPHILUS
     Indication: Supplementation therapy
     Route: 065
  3. ALPHA LIPOIC ACID [Suspect]
     Active Substance: .ALPHA.-LIPOIC ACID
     Indication: Supplementation therapy
     Route: 065

REACTIONS (1)
  - Sulphaemoglobinaemia [Recovered/Resolved]
